FAERS Safety Report 8763735 (Version 1)
Quarter: 2012Q4

REPORT INFORMATION
  Report Type: Spontaneous
  Country: US (occurrence: None)
  Receive Date: 20120831
  Receipt Date: 20120831
  Transmission Date: 20130627
  Serious: Yes (Other)
  Sender: FDA-Public Use
  Company Number: None

PATIENT
  Age: 54 Year
  Sex: Female
  Weight: 68.04 kg

DRUGS (1)
  1. AVELOX [Suspect]
     Indication: SINUS INFECTION
     Dates: start: 20120215, end: 20120224

REACTIONS (5)
  - Fatigue [None]
  - Tendon pain [None]
  - Tendon pain [None]
  - Decreased activity [None]
  - Depression [None]
